FAERS Safety Report 7814632-1 (Version None)
Quarter: 2011Q4

REPORT INFORMATION
  Report Type: 
  Country: None (occurrence: None)
  Receive Date: 20111014
  Receipt Date: 20110930
  Transmission Date: 20120403
  Serious: Yes (Other)
  Sender: FDA-Public Use
  Company Number: US-BAYER-2011-081821

PATIENT
  Age: 29 Year
  Sex: Female
  Weight: 56.689 kg

DRUGS (6)
  1. ONDANSETRON [Concomitant]
     Dosage: 4 MG, UNK
     Dates: start: 20100414
  2. DROSPIRENONE AND ETHINYL ESTRADIOL [Suspect]
     Indication: CONTRACEPTION
  3. ZYRTEC [Concomitant]
     Indication: MULTIPLE ALLERGIES
  4. APAP W/ CODEINE [Concomitant]
     Indication: ARTHRALGIA
     Dosage: UNK
     Dates: start: 20100723
  5. MELOXICAM [Concomitant]
     Indication: ARTHRALGIA
     Dosage: UNK
     Dates: start: 20100715
  6. YASMIN [Suspect]
     Dosage: UNK
     Dates: start: 20100701

REACTIONS (3)
  - PAIN [None]
  - THROMBOPHLEBITIS SUPERFICIAL [None]
  - INJURY [None]
